FAERS Safety Report 9038689 (Version 1)
Quarter: 2013Q1

REPORT INFORMATION
  Report Type: Report from Study
  Country: US (occurrence: US)
  Receive Date: 20130129
  Receipt Date: 20130129
  Transmission Date: 20140127
  Serious: No
  Sender: FDA-Public Use
  Company Number: US-ABBOTT-12P-163-0934859-00

PATIENT
  Age: 51 Year
  Sex: Male

DRUGS (12)
  1. HUMIRA 40 MG/0.8 ML PEN [Suspect]
     Indication: PSORIASIS
     Dates: end: 201202
  2. HUMIRA 40 MG/0.8 ML PEN [Suspect]
     Dates: start: 20120403
  3. GENERIC ZYRTEC [Concomitant]
     Indication: HYPERSENSITIVITY
     Dosage: 1 TABLET DAILY
  4. ENALAPRIL [Concomitant]
     Indication: HYPERTENSION
     Dosage: 2.5MG DAILY
  5. DICYCLOMINE [Concomitant]
     Indication: IRRITABLE BOWEL SYNDROME
  6. MAGNESIUM [Concomitant]
     Indication: CARDIAC DISORDER
     Dosage: 400MG DAILY
  7. TOPROL XL [Concomitant]
     Indication: BLOOD PRESSURE
     Dosage: EVERY MORNING
  8. TOPROL XL [Concomitant]
     Indication: HEART RATE
  9. AMITRIPTYLINE [Concomitant]
     Indication: MUSCLE SPASMS
     Dosage: AT NOC
  10. TRAMADOL [Concomitant]
     Indication: PAIN
  11. PRAVASTATIN [Concomitant]
     Indication: BLOOD CHOLESTEROL INCREASED
     Dosage: AT NOC
  12. ALLERGY MEDICINE [Concomitant]
     Indication: HYPERSENSITIVITY

REACTIONS (5)
  - Wound secretion [Not Recovered/Not Resolved]
  - Rash pruritic [Not Recovered/Not Resolved]
  - Incorrect storage of drug [Not Recovered/Not Resolved]
  - Rash papular [Not Recovered/Not Resolved]
  - Staphylococcal infection [Not Recovered/Not Resolved]
